FAERS Safety Report 7529414-8 (Version None)
Quarter: 2011Q2

REPORT INFORMATION
  Report Type: 
  Country: None (occurrence: None)
  Receive Date: 20110607
  Receipt Date: 20110603
  Transmission Date: 20111010
  Serious: Yes (Hospitalization)
  Sender: FDA-Public Use
  Company Number: DE-SANOFI-AVENTIS-2011SA034841

PATIENT

DRUGS (2)
  1. HUMALOG [Suspect]
     Indication: SUICIDE ATTEMPT
     Route: 065
     Dates: start: 20110101, end: 20110101
  2. LANTUS [Suspect]
     Indication: SUICIDE ATTEMPT
     Route: 065
     Dates: start: 20110101, end: 20110101

REACTIONS (1)
  - SUICIDE ATTEMPT [None]
